FAERS Safety Report 4654410-8 (Version None)
Quarter: 2005Q2

REPORT INFORMATION
  Report Type: 
  Country: None (occurrence: None)
  Receive Date: 20050504
  Receipt Date: 20050421
  Transmission Date: 20051028
  Serious: Yes (Other)
  Sender: FDA-Public Use
  Company Number: 2005066170

PATIENT
  Age: 57 Year
  Sex: Male
  Weight: 86.1834 kg

DRUGS (8)
  1. ZOLOFT [Suspect]
     Indication: DEPRESSION
     Dosage: ORAL
     Route: 048
  2. HYZAAR [Concomitant]
  3. BUPROPION HYDROCHLORIDE [Concomitant]
  4. ENALAPRIL MALEATE [Concomitant]
  5. EFAVIRENZ [Concomitant]
  6. TESTOSTERONE [Concomitant]
  7. NELFINAVIR MESILATE [Concomitant]
  8. ALPROSTADIL [Concomitant]

REACTIONS (3)
  - DRUG INEFFECTIVE [None]
  - LYMPHOMA [None]
  - RECURRENT CANCER [None]
